FAERS Safety Report 5147876-0 (Version None)
Quarter: 2006Q4

REPORT INFORMATION
  Report Type: 
  Country: None (occurrence: None)
  Receive Date: 20061110
  Receipt Date: 20061030
  Transmission Date: 20070319
  Serious: Yes (Other)
  Sender: FDA-Public Use
  Company Number: PHBS2006GB16897

PATIENT
  Age: 70 Year
  Sex: Female

DRUGS (9)
  1. VALSARTAN [Suspect]
     Dosage: 40 MG, QD
  2. FLUVASTATIN SODIUM [Suspect]
     Dosage: 20 MG, QD
  3. SINEMET CR [Suspect]
     Indication: TREMOR
     Dosage: 2 TABLETS/DAY
     Route: 048
  4. SINEMET CR [Suspect]
     Dosage: 4 TABLETS/DAY
     Route: 048
  5. GLICLAZIDE [Concomitant]
     Dosage: 160 MG, QD
  6. ACARBOSE [Concomitant]
     Dosage: 50 MG, TID
  7. ROSIGLITAZONE [Concomitant]
     Dosage: 8 MG, QD
  8. FLUOXETINE [Concomitant]
     Dosage: 40 MG, QD
  9. ASPIRIN [Concomitant]
     Dosage: 75 MG, QD

REACTIONS (3)
  - DYSPHONIA [None]
  - DYSTONIA [None]
  - TREMOR [None]
